FAERS Safety Report 20900818 (Version 4)
Quarter: 2022Q3

REPORT INFORMATION
  Report Type: Report from Study
  Country: CN (occurrence: CN)
  Receive Date: 20220601
  Receipt Date: 20220926
  Transmission Date: 20221027
  Serious: Yes (Hospitalization)
  Sender: FDA-Public Use
  Company Number: CN-GLAXOSMITHKLINE-CN2022GSK077251

PATIENT

DRUGS (49)
  1. BELANTAMAB MAFODOTIN [Suspect]
     Active Substance: BELANTAMAB MAFODOTIN
     Indication: Plasma cell myeloma
     Dosage: 2.5 MG/KG, (182.5 MG) CYC (DAY 1 OF EVERY 21 DAY CYCLE)
     Route: 042
     Dates: start: 20220422, end: 20220422
  2. BELANTAMAB MAFODOTIN [Suspect]
     Active Substance: BELANTAMAB MAFODOTIN
     Dosage: 2.5 MG/KG, (182.5 MG) CYC (DAY 1 OF EVERY 21 DAY CYCLE)
     Route: 042
     Dates: start: 20220512, end: 20220512
  3. ETAMSYLATE INJECTION [Concomitant]
     Indication: Prophylaxis
     Dosage: 2 G, QD
     Route: 050
     Dates: start: 20220418, end: 20220424
  4. ETAMSYLATE INJECTION [Concomitant]
     Indication: Haemorrhage prophylaxis
     Dosage: 2 G, QD
     Route: 042
     Dates: start: 20220511, end: 20220513
  5. ETAMSYLATE INJECTION [Concomitant]
     Dosage: 2 G, QD
     Route: 042
     Dates: start: 20220527, end: 20220602
  6. CALCITRIOL SOFT CAPSULES [Concomitant]
     Indication: Osteoporotic fracture
     Dosage: 0.25 UG, QD
     Route: 048
     Dates: start: 20220407, end: 20220527
  7. CALCIUM CARBONATE AND VITAMIN D3 TABLETS [Concomitant]
     Indication: Osteoporotic fracture
     Dosage: 0.6 G, QD
     Route: 048
     Dates: start: 20211221, end: 20220527
  8. METRONIDAZOLE [Concomitant]
     Active Substance: METRONIDAZOLE
     Indication: Oral infection
     Dosage: 0.4 G, TID
     Route: 048
     Dates: start: 20220415, end: 20220424
  9. METHYLCOBALAMIN [Concomitant]
     Active Substance: METHYLCOBALAMIN
     Indication: Nerve conduction studies normal
     Dosage: 0.5 G, TID
     Route: 048
     Dates: start: 20220303, end: 20220527
  10. VITAMIN B1 TABLETS [Concomitant]
     Indication: Nerve conduction studies normal
     Dosage: 10 MG, TID
     Route: 048
     Dates: start: 20220303, end: 2022
  11. ASPIRIN [Concomitant]
     Active Substance: ASPIRIN
     Indication: Platelet aggregation inhibition
     Dosage: 100 MG, QD
     Route: 048
     Dates: start: 20220323, end: 20220422
  12. ASPIRIN [Concomitant]
     Active Substance: ASPIRIN
     Dosage: 100 UNK
     Route: 048
     Dates: start: 20220509, end: 20220512
  13. SODIUM BICARBONATE [Concomitant]
     Active Substance: SODIUM BICARBONATE
     Indication: Prophylaxis
     Dosage: 4 G, SINGLE
     Route: 042
     Dates: start: 20220422, end: 20220422
  14. SODIUM BICARBONATE [Concomitant]
     Active Substance: SODIUM BICARBONATE
     Dosage: 4 G, QD
     Route: 042
     Dates: start: 20220511, end: 20220513
  15. SODIUM BICARBONATE [Concomitant]
     Active Substance: SODIUM BICARBONATE
     Dosage: 4 G, QD
     Route: 042
     Dates: start: 20220528, end: 20220601
  16. ESZOPICLONE [Concomitant]
     Active Substance: ESZOPICLONE
     Indication: Insomnia
     Dosage: 3 MG, SINGLE
     Route: 048
     Dates: start: 20220411, end: 20220423
  17. CEFUROXIME AXETIL [Concomitant]
     Active Substance: CEFUROXIME AXETIL
     Indication: Oral infection
     Dosage: 0.25 G, BID
     Route: 048
     Dates: start: 20220415, end: 20220422
  18. CEFUROXIME SODIUM [Concomitant]
     Active Substance: CEFUROXIME SODIUM
     Indication: Oral infection
     Dosage: 0.75 G, TID
     Route: 042
     Dates: start: 20220418, end: 20220424
  19. COMPOUND CHLORHEXIDINE GARGLE [Concomitant]
     Indication: Oral infection
     Dosage: 10 ML, TID
     Route: 050
     Dates: start: 20220418, end: 20220422
  20. SODIUM HYALURONATE EYE DROPS [Concomitant]
     Indication: Prophylaxis
     Dosage: 0.1 ML, Z(Q4H)
     Route: 031
     Dates: start: 20220422
  21. PROMETHAZINE [Concomitant]
     Active Substance: PROMETHAZINE HYDROCHLORIDE
     Indication: Prophylaxis
     Dosage: 25 MG, SINGLE
     Route: 030
     Dates: start: 20220422, end: 20220422
  22. PROMETHAZINE [Concomitant]
     Active Substance: PROMETHAZINE HYDROCHLORIDE
     Indication: Allergy prophylaxis
     Dosage: 25 MG, SINGLE
     Route: 030
     Dates: start: 20220512, end: 20220512
  23. LORATADINE [Concomitant]
     Active Substance: LORATADINE
     Indication: Prophylaxis
     Dosage: 10 MG, SINGLE
     Route: 048
     Dates: start: 20220422, end: 20220422
  24. LORATADINE [Concomitant]
     Active Substance: LORATADINE
     Dosage: 10 MG, SINGLE
     Route: 048
     Dates: start: 20220512, end: 20220512
  25. DEXAMETHASONE SODIUM PHOSPHATE [Concomitant]
     Active Substance: DEXAMETHASONE SODIUM PHOSPHATE
     Indication: Prophylaxis
     Dosage: 10 MG, SINGLE
     Route: 042
     Dates: start: 20220422, end: 20220422
  26. DEXAMETHASONE SODIUM PHOSPHATE [Concomitant]
     Active Substance: DEXAMETHASONE SODIUM PHOSPHATE
     Dosage: 10 MG, SINGLE
     Route: 042
     Dates: start: 20220512, end: 20220512
  27. PALONOSETRON HYDROCHLORIDE [Concomitant]
     Active Substance: PALONOSETRON HYDROCHLORIDE
     Indication: Prophylaxis
     Dosage: 0.25 MG, SINGLE
     Route: 042
     Dates: start: 20220422, end: 20220422
  28. PALONOSETRON HYDROCHLORIDE [Concomitant]
     Active Substance: PALONOSETRON HYDROCHLORIDE
     Dosage: 0.25 MG, SINGLE
     Route: 042
     Dates: start: 20220512, end: 20220512
  29. POTASSIUM CHLORIDE [Concomitant]
     Active Substance: POTASSIUM CHLORIDE
     Indication: Prophylaxis
     Dosage: 1.5 G, SINGLE
     Route: 042
     Dates: start: 20220422, end: 20220422
  30. POTASSIUM CHLORIDE [Concomitant]
     Active Substance: POTASSIUM CHLORIDE
     Indication: Prophylaxis
     Dosage: 1.5 G, SINGLE
     Route: 042
     Dates: start: 20220511, end: 20220511
  31. NIFEDIPINE CONTROLLED RELEASE TABLETS [Concomitant]
     Indication: Hypertension
     Dosage: 30 MG, BID
     Route: 048
     Dates: start: 20220420, end: 20220420
  32. NIFEDIPINE CONTROLLED RELEASE TABLETS [Concomitant]
     Dosage: 30 MG, BID
     Route: 048
     Dates: start: 20220509, end: 20220527
  33. DEXTROSE [Concomitant]
     Active Substance: DEXTROSE
     Indication: Fluid retention
     Dosage: 1000 ML, SINGLE
     Route: 042
     Dates: start: 20220422, end: 20220422
  34. DEXTROSE [Concomitant]
     Active Substance: DEXTROSE
     Indication: Fluid replacement
     Dosage: 1000 ML, QD
     Route: 042
     Dates: start: 20220511, end: 20220513
  35. DEXTROSE [Concomitant]
     Active Substance: DEXTROSE
     Dosage: 1000 ML, QD
     Route: 042
     Dates: start: 20220528, end: 20220601
  36. NOREPINEPHRINE BITARTRATE [Concomitant]
     Active Substance: NOREPINEPHRINE BITARTRATE
     Indication: Haemorrhage prophylaxis
     Dosage: TRANSMUCOSAL
     Dates: start: 20220511
  37. REPTILASE [Concomitant]
     Indication: Haemorrhage prophylaxis
     Dosage: 1 U, QD
     Route: 030
     Dates: start: 20220512, end: 20220513
  38. BICYCLOL [Concomitant]
     Active Substance: BICYCLOL
     Indication: Prophylaxis
     Dosage: 25 MG, TID
     Route: 048
     Dates: start: 20220509, end: 20220527
  39. SODIUM CHLORIDE [Concomitant]
     Active Substance: SODIUM CHLORIDE
     Indication: Fluid retention
     Dosage: 500 ML, SINGLE
     Route: 042
     Dates: start: 20220422, end: 20220422
  40. SODIUM CHLORIDE [Concomitant]
     Active Substance: SODIUM CHLORIDE
     Indication: Fluid replacement
     Dosage: 500 ML, SINGLE
     Route: 042
     Dates: start: 20220511, end: 20220513
  41. YUNNAN BAIYAO GAO [Concomitant]
     Indication: Haemorrhage prophylaxis
     Dosage: TRANSMUCOSAL
     Dates: start: 20220511
  42. TRAMADOL HYDROCHLORIDE [Concomitant]
     Active Substance: TRAMADOL HYDROCHLORIDE
     Indication: Pain
     Dosage: 0.1 G, QD
     Route: 048
     Dates: start: 20220328
  43. TRAMADOL HYDROCHLORIDE [Concomitant]
     Active Substance: TRAMADOL HYDROCHLORIDE
     Dosage: 0.1 G, QD
     Route: 048
     Dates: start: 20220528
  44. CALCIUM GLUCONATE [Concomitant]
     Active Substance: CALCIUM GLUCONATE
     Indication: Mineral supplementation
     Dosage: 2 G, ONCE
     Route: 042
     Dates: start: 20220509, end: 20220509
  45. HEMOCOAGULASE FOR INJECTION [Concomitant]
     Indication: Haemorrhage prophylaxis
     Dosage: 1000 U, ONCE
     Route: 030
     Dates: start: 20220511, end: 20220511
  46. HEMOCOAGULASE FOR INJECTION [Concomitant]
     Dosage: 1000 U, ONCE
     Route: 030
     Dates: start: 20220528, end: 20220529
  47. REN SHEN [Concomitant]
     Indication: Nutritional supplementation
     Dosage: UNK, SINGLE
     Route: 065
     Dates: start: 20220322, end: 20220527
  48. REN SHEN [Concomitant]
     Dosage: UNK
     Dates: start: 20220522, end: 20220522
  49. DONG CHONG XIA CAO [Concomitant]
     Indication: Nutritional supplementation
     Dosage: UNK, SINGLE
     Route: 065
     Dates: start: 20220522, end: 20220522

REACTIONS (2)
  - Bone pain [Not Recovered/Not Resolved]
  - Malaise [Recovered/Resolved]

NARRATIVE: CASE EVENT DATE: 20220509
